FAERS Safety Report 16031994 (Version 2)
Quarter: 2019Q2

REPORT INFORMATION
  Report Type: Other
  Country: None (occurrence: US)
  Receive Date: 20190304
  Receipt Date: 20190613
  Transmission Date: 20190711
  Serious: Yes (Death, Hospitalization)
  Sender: FDA-Public Use
  Company Number: US-MEDAC PHARMA, INC.-2063525

PATIENT
  Age: 20 Year
  Sex: Male
  Weight: 82.9 kg

DRUGS (5)
  1. VINCRISTINE SULFATE. [Suspect]
     Active Substance: VINCRISTINE SULFATE
     Dates: start: 20181011, end: 20181025
  2. ONCASPAR [Suspect]
     Active Substance: PEGASPARGASE
     Dates: start: 20181013, end: 20181027
  3. MITOXANTRONE HYDROCHLORIDE. [Suspect]
     Active Substance: MITOXANTRONE HYDROCHLORIDE
     Dates: start: 20181011, end: 20181012
  4. METHOTREXATE. [Suspect]
     Active Substance: METHOTREXATE
     Indication: B PRECURSOR TYPE ACUTE LEUKAEMIA
     Dates: start: 20181025, end: 20181025
  5. DEXAMETHASONE. [Suspect]
     Active Substance: DEXAMETHASONE
     Dates: start: 20181011, end: 20181029

REACTIONS (8)
  - Hypovolaemic shock [Fatal]
  - Respiratory distress [Unknown]
  - Fungal infection [Unknown]
  - Sepsis [Fatal]
  - Cardio-respiratory arrest [Fatal]
  - Mental status changes [Unknown]
  - Dehydration [Unknown]
  - Blood pressure decreased [Not Recovered/Not Resolved]

NARRATIVE: CASE EVENT DATE: 201810
